FAERS Safety Report 7459601-9 (Version None)
Quarter: 2011Q2

REPORT INFORMATION
  Report Type: 
  Country: None (occurrence: None)
  Receive Date: 20110505
  Receipt Date: 20110427
  Transmission Date: 20111010
  Serious: Yes (Hospitalization)
  Sender: FDA-Public Use
  Company Number: US-CUBIST-2011S1000284

PATIENT
  Age: 21 Year
  Sex: Male
  Weight: 90 kg

DRUGS (1)
  1. VANCOMYCIN [Suspect]
     Indication: CELLULITIS
     Route: 042
     Dates: start: 20110108, end: 20110127

REACTIONS (1)
  - DRUG LEVEL INCREASED [None]
